FAERS Safety Report 4647398-7 (Version None)
Quarter: 2005Q2

REPORT INFORMATION
  Report Type: 
  Country: None (occurrence: None)
  Receive Date: 20050426
  Receipt Date: 20050412
  Transmission Date: 20051028
  Serious: Yes (Hospitalization)
  Sender: FDA-Public Use
  Company Number: 2005US000283

PATIENT
  Age: 22 Year
  Sex: Female
  Weight: 22.2263 kg

DRUGS (3)
  1. PROGRAF [Suspect]
     Indication: PROPHYLAXIS AGAINST TRANSPLANT REJECTION
     Dosage: ORAL
     Route: 048
     Dates: start: 20050203
  2. MYCOPHENOLATE MOFETIL (MYCOPHENOLATE  MOFETIL) [Suspect]
     Indication: PROPHYLAXIS AGAINST TRANSPLANT REJECTION
     Dosage: 2.00 G, UID/QD, ORAL
     Route: 048
     Dates: start: 20050203
  3. PREDNISONE [Suspect]
     Indication: PROPHYLAXIS AGAINST TRANSPLANT REJECTION
     Dosage: 5.00 MG, QOD, ORAL
     Route: 048
     Dates: start: 20050211

REACTIONS (3)
  - BACTERIAL PYELONEPHRITIS [None]
  - ESCHERICHIA URINARY TRACT INFECTION [None]
  - RENAL ABSCESS [None]
